FAERS Safety Report 13360156 (Version 3)
Quarter: 2017Q2

REPORT INFORMATION
  Report Type: Spontaneous
  Country: JP (occurrence: JP)
  Receive Date: 20170322
  Receipt Date: 20170606
  Transmission Date: 20170830
  Serious: No
  Sender: FDA-Public Use
  Company Number: JP-ALLERGAN-1000087659

PATIENT
  Sex: Female

DRUGS (3)
  1. ASENAPINE MALEATE - BP [Suspect]
     Active Substance: ASENAPINE MALEATE
     Indication: PRODUCT USED FOR UNKNOWN INDICATION
     Dosage: 10 MG (TWO TABLETS EACH) IN THE MORNING AND IN THE EVENING
     Route: 060
     Dates: start: 20160610
  2. OLANZAPINE. [Concomitant]
     Active Substance: OLANZAPINE
     Dosage: UNK
  3. RISPERIDONE. [Concomitant]
     Active Substance: RISPERIDONE
     Dosage: UNK

REACTIONS (6)
  - Nightmare [Unknown]
  - Rash [Unknown]
  - Tobacco interaction [Unknown]
  - Irritability [Unknown]
  - Hallucination, auditory [Unknown]
  - Somnolence [Unknown]

NARRATIVE: CASE EVENT DATE: 2016
